FAERS Safety Report 6429349-8 (Version None)
Quarter: 2009Q4

REPORT INFORMATION
  Report Type: 
  Country: None (occurrence: None)
  Receive Date: 20091105
  Receipt Date: 20090518
  Transmission Date: 20100525
  Serious: Yes (Other)
  Sender: FDA-Public Use
  Company Number: US-ABBOTT-09P-163-0574336-00

PATIENT
  Age: 37 Year
  Sex: Male
  Weight: 103.06 kg

DRUGS (3)
  1. KALETRA [Suspect]
     Indication: HIV INFECTION
     Route: 048
     Dates: start: 20080811, end: 20090330
  2. TRUVADA [Suspect]
     Indication: HIV INFECTION
     Route: 048
     Dates: start: 20080811, end: 20090330
  3. VICRIVIROC SCH 417690 (S-P) (CCR5 ANTAGONIST) STUDY DRUG [Suspect]
     Indication: HIV INFECTION
     Route: 048
     Dates: start: 20080811, end: 20090330

REACTIONS (3)
  - ALANINE AMINOTRANSFERASE ABNORMAL [None]
  - ASPARTATE AMINOTRANSFERASE ABNORMAL [None]
  - DRUG DOSE OMISSION [None]
